FAERS Safety Report 24420964 (Version 2)
Quarter: 2024Q4

REPORT INFORMATION
  Report Type: Report from Study
  Country: US (occurrence: US)
  Receive Date: 20241010
  Receipt Date: 20241018
  Transmission Date: 20250114
  Serious: No
  Sender: ROCHE
  Company Number: US-ROCHE-3572277

PATIENT
  Age: 54 Year
  Sex: Female

DRUGS (3)
  1. ALTEPLASE [Suspect]
     Active Substance: ALTEPLASE
     Indication: Complication associated with device
     Route: 065
     Dates: start: 20240410
  2. ALTEPLASE [Suspect]
     Active Substance: ALTEPLASE
     Route: 065
     Dates: start: 20240411
  3. ALTEPLASE [Suspect]
     Active Substance: ALTEPLASE
     Route: 065
     Dates: start: 20240412

REACTIONS (2)
  - Off label use [Unknown]
  - No adverse event [Unknown]
